FAERS Safety Report 10187920 (Version 1)
Quarter: 2014Q2

REPORT INFORMATION
  Report Type: Spontaneous
  Country: US (occurrence: US)
  Receive Date: 20140522
  Receipt Date: 20140522
  Transmission Date: 20141212
  Serious: Yes (Other)
  Sender: FDA-Public Use
  Company Number: US-UCBSA-121008

PATIENT
  Sex: Female

DRUGS (1)
  1. KEPPRA [Suspect]
     Indication: EPILEPSY
     Dosage: DRUG STRENGTH 1000MG

REACTIONS (8)
  - Convulsion [Unknown]
  - Abortion spontaneous [Unknown]
  - Asthenia [Unknown]
  - Dysarthria [Unknown]
  - Malaise [Unknown]
  - Twin pregnancy [Recovered/Resolved]
  - Pregnancy [Recovered/Resolved]
  - Overdose [Unknown]
